FAERS Safety Report 19080162 (Version 1)
Quarter: 2021Q1

REPORT INFORMATION
  Report Type: Other
  Country: None (occurrence: IT)
  Receive Date: 20210331
  Receipt Date: 20210331
  Transmission Date: 20210420
  Serious: Yes (Other)
  Sender: FDA-Public Use
  Company Number: IT-VALIDUS PHARMACEUTICALS LLC-IT-2021VAL000823

PATIENT
  Age: 60 Year
  Sex: Female

DRUGS (6)
  1. EUTIROX [Concomitant]
     Active Substance: LEVOTHYROXINE SODIUM
  2. SEQUACOR [Concomitant]
     Active Substance: BISOPROLOL
  3. IVABRADINE [Concomitant]
     Active Substance: IVABRADINE
  4. LASIX [Suspect]
     Active Substance: FUROSEMIDE
     Indication: HYPERTENSION
     Dosage: 25 MG
  5. OMEPRAZOLE. [Concomitant]
     Active Substance: OMEPRAZOLE
  6. TRIATEC                            /00885601/ [Suspect]
     Active Substance: RAMIPRIL
     Indication: HYPERTENSION
     Dosage: 2.5 QD
     Dates: start: 20180907

REACTIONS (3)
  - Therapy non-responder [None]
  - Chest pain [Recovering/Resolving]
  - Blood pressure increased [None]

NARRATIVE: CASE EVENT DATE: 20181220
